FAERS Safety Report 7392251-1 (Version None)
Quarter: 2011Q2

REPORT INFORMATION
  Report Type: 
  Country: None (occurrence: None)
  Receive Date: 20110404
  Receipt Date: 20110324
  Transmission Date: 20111010
  Serious: Yes (Hospitalization, Other)
  Sender: FDA-Public Use
  Company Number: US-MERCK-1012USA01888

PATIENT
  Age: 63 Year
  Sex: Female
  Weight: 77 kg

DRUGS (11)
  1. FOSAMAX [Suspect]
     Route: 048
     Dates: start: 19990622, end: 20001001
  2. LOTREL [Concomitant]
     Indication: HYPERTENSION
     Route: 065
  3. FOSAMAX [Suspect]
     Indication: OSTEOARTHRITIS
     Route: 048
     Dates: start: 20020101, end: 20080101
  4. FOSAMAX [Suspect]
     Route: 048
     Dates: start: 20001001, end: 20020101
  5. FOSAMAX [Suspect]
     Route: 048
     Dates: start: 19990622, end: 20001001
  6. FOSAMAX [Suspect]
     Indication: OSTEOPOROSIS
     Route: 048
     Dates: start: 20020101, end: 20080101
  7. FOSAMAX [Suspect]
     Route: 048
     Dates: start: 20001001, end: 20020101
  8. ALENDRONATE SODIUM [Suspect]
     Indication: OSTEOPOROSIS
     Route: 048
     Dates: start: 20080301, end: 20080901
  9. ALENDRONATE SODIUM [Suspect]
     Indication: OSTEOARTHRITIS
     Route: 048
     Dates: start: 20080301, end: 20080901
  10. ZOCOR [Concomitant]
     Indication: HYPERLIPIDAEMIA
     Route: 048
  11. CALCIUM (UNSPECIFIED) [Concomitant]
     Route: 065

REACTIONS (37)
  - HYPOTHYROIDISM [None]
  - ANKLE FRACTURE [None]
  - ULNAR NERVE PALSY [None]
  - SPINAL COLUMN STENOSIS [None]
  - OSTEONECROSIS OF JAW [None]
  - ACUTE SINUSITIS [None]
  - HAIR TEXTURE ABNORMAL [None]
  - METABOLIC DISORDER [None]
  - SINUSITIS [None]
  - POST LAMINECTOMY SYNDROME [None]
  - SPINAL COMPRESSION FRACTURE [None]
  - PALATAL DISORDER [None]
  - DRUG HYPERSENSITIVITY [None]
  - CHRONIC OBSTRUCTIVE PULMONARY DISEASE [None]
  - CHEST PAIN [None]
  - SPINAL DISORDER [None]
  - UPPER LIMB FRACTURE [None]
  - FALL [None]
  - JAW DISORDER [None]
  - WEIGHT INCREASED [None]
  - TRAUMATIC ARTHRITIS [None]
  - CATARACT [None]
  - MUSCLE INJURY [None]
  - ASTHMA [None]
  - MEMORY IMPAIRMENT [None]
  - CARPAL TUNNEL SYNDROME [None]
  - OSTEOARTHRITIS [None]
  - MUSCULAR WEAKNESS [None]
  - DRY SKIN [None]
  - PLEURISY [None]
  - MACULAR DEGENERATION [None]
  - SPINAL OSTEOARTHRITIS [None]
  - INCONTINENCE [None]
  - PNEUMONIA [None]
  - PATELLA FRACTURE [None]
  - RADICULOPATHY [None]
  - GASTRITIS [None]
